FAERS Safety Report 4546437-1 (Version None)
Quarter: 2005Q1

REPORT INFORMATION
  Report Type: 
  Country: None (occurrence: None)
  Receive Date: 20050105
  Receipt Date: 20041221
  Transmission Date: 20050727
  Serious: Yes (Death, Hospitalization)
  Sender: FDA-Public Use
  Company Number: 2004AL000597

PATIENT
  Age: 48 Year
  Sex: Female

DRUGS (2)
  1. ACETAMINOPHEN [Suspect]
     Indication: BACK PAIN
     Dosage: PO
     Route: 048
  2. ACETAMINOPHEN [Suspect]
     Indication: BACK PAIN
     Dosage: PO
     Route: 048

REACTIONS (9)
  - ACCIDENTAL OVERDOSE [None]
  - COAGULOPATHY [None]
  - ENCEPHALOPATHY [None]
  - GENERAL PHYSICAL HEALTH DETERIORATION [None]
  - HEPATIC FAILURE [None]
  - HYPERAMMONAEMIA [None]
  - JAUNDICE [None]
  - MEDICATION ERROR [None]
  - PYREXIA [None]
